FAERS Safety Report 18043481 (Version 1)
Quarter: 2020Q3

REPORT INFORMATION
  Report Type: Spontaneous
  Country: US (occurrence: US)
  Receive Date: 20200717
  Receipt Date: 20200717
  Transmission Date: 20201103
  Serious: Yes (Other)
  Sender: FDA-Public Use
  Company Number: None

PATIENT
  Age: 8 Year
  Sex: Female
  Weight: 18.9 kg

DRUGS (4)
  1. NUTROPIN AQ NUSPIN 5 [Suspect]
     Active Substance: SOMATROPIN
     Indication: BLOOD GROWTH HORMONE ABNORMAL
     Dosage: ?          QUANTITY:1 INJECTION(S);?
     Route: 058
     Dates: start: 20200322, end: 20200328
  2. LEVOTHYROXINE. [Concomitant]
     Active Substance: LEVOTHYROXINE
  3. NORDITROPIN [Concomitant]
     Active Substance: SOMATROPIN
  4. VITAMIN D [Concomitant]
     Active Substance: VITAMIN D NOS

REACTIONS (5)
  - Injection site pain [None]
  - Injection site urticaria [None]
  - Injection site pruritus [None]
  - Injection site vesicles [None]
  - Injection site erythema [None]

NARRATIVE: CASE EVENT DATE: 20200328
